FAERS Safety Report 11418334 (Version 1)
Quarter: 2015Q3

REPORT INFORMATION
  Report Type: Report from Study
  Country: US (occurrence: US)
  Receive Date: 20150825
  Receipt Date: 20150825
  Transmission Date: 20151125
  Serious: Yes (Disabling)
  Sender: FDA-Public Use
  Company Number: PHEH2015US015843

PATIENT
  Sex: Female
  Weight: 116.1 kg

DRUGS (17)
  1. PROZAC [Concomitant]
     Active Substance: FLUOXETINE HYDROCHLORIDE
     Indication: PRODUCT USED FOR UNKNOWN INDICATION
     Route: 065
  2. FLUTICASONE [Concomitant]
     Active Substance: FLUTICASONE\FLUTICASONE PROPIONATE
     Indication: PRODUCT USED FOR UNKNOWN INDICATION
     Route: 065
  3. BACLOFEN. [Concomitant]
     Active Substance: BACLOFEN
     Indication: PRODUCT USED FOR UNKNOWN INDICATION
     Route: 065
  4. ACETYLSALICYLIC ACID [Concomitant]
     Active Substance: ASPIRIN
     Indication: PRODUCT USED FOR UNKNOWN INDICATION
     Route: 065
  5. PERCOCET [Concomitant]
     Active Substance: ACETAMINOPHEN\OXYCODONE HYDROCHLORIDE
     Indication: PRODUCT USED FOR UNKNOWN INDICATION
     Route: 065
  6. LATUDA [Concomitant]
     Active Substance: LURASIDONE HYDROCHLORIDE
     Indication: PRODUCT USED FOR UNKNOWN INDICATION
     Route: 065
  7. GILENYA [Suspect]
     Active Substance: FINGOLIMOD HYDROCHLORIDE
     Indication: MULTIPLE SCLEROSIS
     Dosage: 0.5 MG, QD
     Route: 048
     Dates: start: 2012
  8. AUBAGIO [Suspect]
     Active Substance: TERIFLUNOMIDE
     Indication: RELAPSING-REMITTING MULTIPLE SCLEROSIS
     Route: 065
  9. METHOTREXATE [Suspect]
     Active Substance: METHOTREXATE
     Indication: RELAPSING-REMITTING MULTIPLE SCLEROSIS
     Route: 065
  10. VITAMIN C [Concomitant]
     Active Substance: ASCORBIC ACID
     Indication: PRODUCT USED FOR UNKNOWN INDICATION
     Route: 065
  11. GABAPENTIN. [Concomitant]
     Active Substance: GABAPENTIN
     Indication: PRODUCT USED FOR UNKNOWN INDICATION
     Route: 065
  12. LEVOTHYROXINE. [Concomitant]
     Active Substance: LEVOTHYROXINE
     Indication: PRODUCT USED FOR UNKNOWN INDICATION
     Route: 065
  13. FIBERSOURCE [Concomitant]
     Indication: PRODUCT USED FOR UNKNOWN INDICATION
     Route: 065
  14. VITAMIN D3 [Concomitant]
     Active Substance: CHOLECALCIFEROL
     Indication: PRODUCT USED FOR UNKNOWN INDICATION
     Route: 065
  15. TRI-PREVIFEM [Concomitant]
     Active Substance: ETHINYL ESTRADIOL\NORGESTIMATE
     Indication: PRODUCT USED FOR UNKNOWN INDICATION
     Route: 065
  16. TYSABRI [Suspect]
     Active Substance: NATALIZUMAB
     Indication: RELAPSING-REMITTING MULTIPLE SCLEROSIS
     Route: 065
  17. AMITIZA [Concomitant]
     Active Substance: LUBIPROSTONE
     Indication: PRODUCT USED FOR UNKNOWN INDICATION
     Route: 065

REACTIONS (62)
  - Relapsing-remitting multiple sclerosis [Not Recovered/Not Resolved]
  - IIIrd nerve paralysis [Unknown]
  - Fatigue [Not Recovered/Not Resolved]
  - Confusional state [Not Recovered/Not Resolved]
  - Hypoaesthesia [Unknown]
  - Paraesthesia [Unknown]
  - Muscular weakness [Unknown]
  - Neck pain [Not Recovered/Not Resolved]
  - Myoclonus [Unknown]
  - Dysarthria [Unknown]
  - Contusion [Not Recovered/Not Resolved]
  - Temporomandibular joint syndrome [Unknown]
  - Dyspnoea [Recovering/Resolving]
  - Back pain [Unknown]
  - Asthenia [Unknown]
  - Amnesia [Not Recovered/Not Resolved]
  - Depression [Not Recovered/Not Resolved]
  - Monoparesis [Unknown]
  - Chronic fatigue syndrome [Unknown]
  - Increased appetite [Unknown]
  - Joint swelling [Not Recovered/Not Resolved]
  - Headache [Not Recovered/Not Resolved]
  - Vertigo [Not Recovered/Not Resolved]
  - Myalgia [Unknown]
  - Gait disturbance [Not Recovered/Not Resolved]
  - Dyslexia [Unknown]
  - Motor dysfunction [Unknown]
  - Urinary tract disorder [Unknown]
  - Varicose vein [Unknown]
  - Diplopia [Not Recovered/Not Resolved]
  - Tremor [Unknown]
  - Mood swings [Not Recovered/Not Resolved]
  - Memory impairment [Unknown]
  - Nystagmus [Unknown]
  - Ataxia [Unknown]
  - Stress [Unknown]
  - Disturbance in attention [Unknown]
  - Cerebellar syndrome [Unknown]
  - Vision blurred [Not Recovered/Not Resolved]
  - Constipation [Not Recovered/Not Resolved]
  - Musculoskeletal pain [Unknown]
  - Speech disorder [Unknown]
  - Hypertonia [Unknown]
  - Hyperaesthesia [Unknown]
  - Sensory loss [Unknown]
  - Paraplegia [Unknown]
  - Urinary incontinence [Not Recovered/Not Resolved]
  - Micturition urgency [Unknown]
  - Coordination abnormal [Not Recovered/Not Resolved]
  - Anxiety [Not Recovered/Not Resolved]
  - Visual acuity reduced [Unknown]
  - Urinary retention [Unknown]
  - Sexual dysfunction [Unknown]
  - Affect lability [Unknown]
  - Dizziness [Not Recovered/Not Resolved]
  - Neuralgia [Unknown]
  - Visual impairment [Unknown]
  - Nephrolithiasis [Not Recovered/Not Resolved]
  - Blindness [Recovering/Resolving]
  - Gait spastic [Unknown]
  - Optic neuritis [Unknown]
  - Pain [Not Recovered/Not Resolved]
